FAERS Safety Report 21169790 (Version 1)
Quarter: 2022Q3

REPORT INFORMATION
  Report Type: Spontaneous
  Country: DE (occurrence: DE)
  Receive Date: 20220804
  Receipt Date: 20220804
  Transmission Date: 20221027
  Serious: No
  Sender: FDA-Public Use
  Company Number: DE-ALKEM LABORATORIES LIMITED-DE-ALKEM-2022-03751

PATIENT
  Age: 78 Year
  Sex: Female

DRUGS (3)
  1. PREGABALIN [Suspect]
     Active Substance: PREGABALIN
     Indication: Restlessness
     Dosage: UNK
     Route: 065
     Dates: start: 20211029, end: 20211112
  2. PREGABALIN [Suspect]
     Active Substance: PREGABALIN
     Indication: Polyneuropathy
  3. HETLIOZ [Suspect]
     Active Substance: TASIMELTEON
     Indication: Irregular sleep wake rhythm disorder
     Dosage: 20 MILLIGRAM EVERY 1 DAY
     Route: 048
     Dates: start: 20190115

REACTIONS (2)
  - Insomnia [Recovered/Resolved]
  - Paraesthesia [Recovered/Resolved]
